FAERS Safety Report 4955887-0 (Version None)
Quarter: 2006Q1

REPORT INFORMATION
  Report Type: 
  Country: None (occurrence: None)
  Receive Date: 20060328
  Receipt Date: 20060316
  Transmission Date: 20060701
  Serious: Yes (Hospitalization)
  Sender: FDA-Public Use
  Company Number: JP-GILEAD-2006-0009331

PATIENT
  Sex: Male

DRUGS (6)
  1. HEPSERA [Suspect]
     Indication: HEPATIC CIRRHOSIS
     Route: 048
     Dates: start: 20060119, end: 20060223
  2. ZEFFIX [Concomitant]
     Dates: start: 20050519
  3. URSO [Concomitant]
     Dates: start: 20050519
  4. AMINOLEBAN EN [Concomitant]
     Dates: start: 20050519
  5. OMEPRAZON [Concomitant]
     Dates: start: 20050519
  6. PROMAC [Concomitant]
     Dates: start: 20050519

REACTIONS (4)
  - BLOOD BILIRUBIN INCREASED [None]
  - BLOOD CREATININE INCREASED [None]
  - HEPATIC FAILURE [None]
  - HYPERAMMONAEMIA [None]
